FAERS Safety Report 9734249 (Version 1)
Quarter: 2013Q4

REPORT INFORMATION
  Report Type: Spontaneous
  Country: US (occurrence: US)
  Receive Date: 20131205
  Receipt Date: 20131205
  Transmission Date: 20140711
  Serious: No
  Sender: FDA-Public Use
  Company Number: US-009507513-1304USA002718

PATIENT
  Sex: Female

DRUGS (2)
  1. CORICIDIN HBP COLD AND FLU [Suspect]
     Indication: CHOKING
     Dosage: 2 DF, ONCE
     Route: 048
  2. TYLENOL [Concomitant]
     Indication: CHOKING
     Dosage: UNK, UNKNOWN

REACTIONS (3)
  - Accidental overdose [Unknown]
  - Product label confusion [Unknown]
  - Off label use [Unknown]
